FAERS Safety Report 7504899-1 (Version None)
Quarter: 2011Q2

REPORT INFORMATION
  Report Type: 
  Country: None (occurrence: None)
  Receive Date: 20110526
  Receipt Date: 20110518
  Transmission Date: 20111010
  Serious: Yes (Hospitalization)
  Sender: FDA-Public Use
  Company Number: US-BIOGENIDEC-2011BI018763

PATIENT
  Age: 33 Year
  Sex: Female

DRUGS (5)
  1. LIPITOR [Concomitant]
     Indication: BLOOD CHOLESTEROL INCREASED
     Dates: start: 20060101
  2. SEROQUEL [Concomitant]
     Indication: INSOMNIA
     Dates: start: 20040101
  3. LYRICA [Concomitant]
     Indication: NEUROPATHY PERIPHERAL
     Dates: start: 20050101
  4. TYSABRI [Suspect]
     Indication: MULTIPLE SCLEROSIS
     Route: 042
     Dates: start: 20090701
  5. TYSABRI [Suspect]
     Route: 042
     Dates: start: 20070101, end: 20080801

REACTIONS (3)
  - PULMONARY THROMBOSIS [None]
  - THROMBOSIS [None]
  - TACHYCARDIA [None]
